FAERS Safety Report 6640296-9 (Version None)
Quarter: 2010Q1

REPORT INFORMATION
  Report Type: 
  Country: None (occurrence: None)
  Receive Date: 20100318
  Receipt Date: 20100304
  Transmission Date: 20100710
  Serious: Yes (Hospitalization)
  Sender: FDA-Public Use
  Company Number: US-ROCHE-691087

PATIENT
  Sex: Female
  Weight: 66.2 kg

DRUGS (4)
  1. HERCEPTIN [Suspect]
     Route: 042
     Dates: start: 20091027, end: 20091029
  2. CARBOPLATIN [Suspect]
     Indication: DRUG USE FOR UNKNOWN INDICATION
     Route: 065
  3. TAXOTERE [Suspect]
     Indication: DRUG USE FOR UNKNOWN INDICATION
     Route: 065
  4. TAXOTERE [Suspect]
     Dosage: RECHALLENGED
     Route: 065

REACTIONS (3)
  - HAEMORRHAGE URINARY TRACT [None]
  - OBSTRUCTIVE UROPATHY [None]
  - URETERIC HAEMORRHAGE [None]
